FAERS Safety Report 14430895 (Version 1)
Quarter: 2018Q1

REPORT INFORMATION
  Report Type: Spontaneous
  Country: FR (occurrence: FR)
  Receive Date: 20180124
  Receipt Date: 20180124
  Transmission Date: 20180509
  Serious: Yes (Life-Threatening, Hospitalization)
  Sender: FDA-Public Use
  Company Number: FR-ROCHE-2057004

PATIENT
  Age: 45 Year
  Sex: Female

DRUGS (2)
  1. XELODA [Suspect]
     Active Substance: CAPECITABINE
     Indication: HER-2 POSITIVE BREAST CANCER
     Route: 048
     Dates: start: 201705, end: 201711
  2. TYVERB [Suspect]
     Active Substance: LAPATINIB
     Indication: HER-2 POSITIVE BREAST CANCER
     Route: 048
     Dates: start: 201705, end: 20171120

REACTIONS (5)
  - Thrombocytopenia [Not Recovered/Not Resolved]
  - Haemolytic anaemia [Not Recovered/Not Resolved]
  - Cerebral haemorrhage [Recovering/Resolving]
  - Coagulopathy [Recovering/Resolving]
  - Rectal haemorrhage [Recovering/Resolving]

NARRATIVE: CASE EVENT DATE: 20171110
